FAERS Safety Report 7532375-9 (Version None)
Quarter: 2011Q2

REPORT INFORMATION
  Report Type: 
  Country: None (occurrence: None)
  Receive Date: 20110608
  Receipt Date: 20110606
  Transmission Date: 20111010
  Serious: Yes (Other)
  Sender: FDA-Public Use
  Company Number: JP-PFIZER INC-2011122700

PATIENT
  Sex: Male

DRUGS (3)
  1. LYRICA [Suspect]
     Indication: HYPOAESTHESIA
     Dosage: 75 MG, 2X/DAY
     Route: 048
     Dates: start: 20110401
  2. VOGLIBOSE [Concomitant]
     Dosage: UNK
  3. AMARYL [Concomitant]
     Dosage: UNK

REACTIONS (4)
  - RENAL IMPAIRMENT [None]
  - BLOOD CREATININE DECREASED [None]
  - HYPONATRAEMIA [None]
  - DIZZINESS [None]
